FAERS Safety Report 12881067 (Version 1)
Quarter: 2016Q4

REPORT INFORMATION
  Report Type: Spontaneous
  Country: US (occurrence: US)
  Receive Date: 20161025
  Receipt Date: 20161025
  Transmission Date: 20170207
  Serious: Yes (Other)
  Sender: FDA-Public Use
  Company Number: US-JNJFOC-20160910426

PATIENT
  Sex: Male

DRUGS (3)
  1. RISPERDAL [Suspect]
     Active Substance: RISPERIDONE
     Indication: PRODUCT USED FOR UNKNOWN INDICATION
     Dosage: 1 MG IN THE MORNING AND 2 MG AT BEDTIME.
     Route: 048
     Dates: start: 200812, end: 2014
  2. RISPERDAL [Suspect]
     Active Substance: RISPERIDONE
     Indication: PRODUCT USED FOR UNKNOWN INDICATION
     Route: 048
     Dates: start: 2005
  3. RISPERDAL [Suspect]
     Active Substance: RISPERIDONE
     Indication: PRODUCT USED FOR UNKNOWN INDICATION
     Dosage: 1 MG IN THE MORNING AND 0.5 MG AT BEDTIME.
     Route: 048
     Dates: start: 20071005

REACTIONS (16)
  - Mental impairment [Unknown]
  - Chest pain [Unknown]
  - Emotional disorder [Unknown]
  - Breast enlargement [Unknown]
  - Dyssomnia [Unknown]
  - Emotional distress [Unknown]
  - Swelling [Unknown]
  - Feeling of despair [Unknown]
  - Depression [Unknown]
  - Social anxiety disorder [Unknown]
  - Disturbance in attention [Unknown]
  - Gastrointestinal disorder [Unknown]
  - Motor dysfunction [Unknown]
  - Anxiety [Unknown]
  - Psychological trauma [Unknown]
  - Fear [Unknown]
